FAERS Safety Report 9031704 (Version 5)
Quarter: 2013Q4

REPORT INFORMATION
  Report Type: Spontaneous
  Country: US (occurrence: US)
  Receive Date: 20130124
  Receipt Date: 20131107
  Transmission Date: 20140711
  Serious: Yes (Hospitalization, Other)
  Sender: FDA-Public Use
  Company Number: US-009507513-1301USA010912

PATIENT
  Sex: Female

DRUGS (15)
  1. FOSAMAX [Suspect]
     Indication: OSTEOPOROSIS
     Dosage: 70 MG, QW
     Route: 048
     Dates: start: 2001
  2. FOSAMAX PLUS D [Suspect]
     Indication: OSTEOPOROSIS
     Dosage: 70 MG-2800IU, QW
     Route: 048
     Dates: start: 200510, end: 200912
  3. VITAMINS (UNSPECIFIED) [Concomitant]
     Dosage: UNK, QD
     Dates: start: 1980
  4. CALCIUM (UNSPECIFIED) (+) VITAMIN D (UNSPECIFIED) [Concomitant]
     Dosage: 600MG/125IU 1-2 QD
     Dates: start: 1980
  5. OMEGA-3 MARINE TRIGLYCERIDES [Concomitant]
     Dosage: 1200 MG, QD
     Dates: start: 1980
  6. OMEPRAZOLE [Concomitant]
     Dosage: UNK
     Dates: start: 1969
  7. ACTOS [Concomitant]
     Dosage: 45 MG, QD
     Dates: start: 2000
  8. CORTICOSTEROIDS (UNSPECIFIED) [Concomitant]
     Dosage: UNK
     Dates: start: 1990
  9. SYNTHROID [Concomitant]
     Indication: HYPOTHYROIDISM
     Dosage: UNK
  10. FLUOXETINE [Concomitant]
     Indication: DEPRESSION
     Dosage: UNK
     Dates: start: 1990, end: 201303
  11. CORTEF [Concomitant]
  12. CALCIUM (UNSPECIFIED) [Concomitant]
  13. STARLIX [Concomitant]
  14. PROZAC [Concomitant]
  15. ASPIRIN [Concomitant]
     Dosage: 81 MG, QD

REACTIONS (65)
  - Internal fixation of fracture [Unknown]
  - Bone graft [Unknown]
  - Biopsy bone [Unknown]
  - Intramedullary rod insertion [Unknown]
  - Patella fracture [Unknown]
  - Pneumonia [Unknown]
  - Rotator cuff repair [Unknown]
  - Open reduction of fracture [Unknown]
  - Open reduction of fracture [Unknown]
  - Kidney infection [Unknown]
  - Femur fracture [Unknown]
  - Deafness [Unknown]
  - Femur fracture [Unknown]
  - Femur fracture [Unknown]
  - Fall [Unknown]
  - Radius fracture [Unknown]
  - Fasciotomy [Unknown]
  - Radius fracture [Unknown]
  - Knee operation [Unknown]
  - Gingival graft [Unknown]
  - Gingival disorder [Unknown]
  - Arthritis [Unknown]
  - Bone lesion [Unknown]
  - Fall [Unknown]
  - Fracture [Unknown]
  - Meniscus injury [Unknown]
  - Haematoma [Recovering/Resolving]
  - Muscle strain [Unknown]
  - Lipoma [Unknown]
  - Fall [Unknown]
  - Rotator cuff syndrome [Unknown]
  - Rotator cuff syndrome [Unknown]
  - Arthritis [Unknown]
  - Foot fracture [Unknown]
  - Scoliosis [Unknown]
  - Intervertebral disc degeneration [Unknown]
  - Fall [Unknown]
  - Uterine dilation and curettage [Unknown]
  - Addison^s disease [Unknown]
  - Haemorrhage [Unknown]
  - Epidural lipomatosis [Unknown]
  - Arthropathy [Unknown]
  - Patella fracture [Unknown]
  - Spinal column stenosis [Unknown]
  - Ligament sprain [Unknown]
  - Sleep disorder [Unknown]
  - Pain [Not Recovered/Not Resolved]
  - Increased tendency to bruise [Unknown]
  - Biopsy breast [Unknown]
  - Cataract operation [Unknown]
  - Large intestinal polypectomy [Unknown]
  - Tonsillectomy [Unknown]
  - Cardiac murmur [Unknown]
  - Chronic obstructive pulmonary disease [Unknown]
  - Neuropathy peripheral [Unknown]
  - Migraine [Unknown]
  - Osteoarthritis [Unknown]
  - Anxiety disorder [Unknown]
  - Bursitis [Unknown]
  - Erythema [Unknown]
  - Arthralgia [Unknown]
  - Headache [Unknown]
  - Pain in extremity [Unknown]
  - Pain in extremity [Unknown]
  - Back pain [Not Recovered/Not Resolved]
